FAERS Safety Report 15938351 (Version 1)
Quarter: 2019Q1

REPORT INFORMATION
  Report Type: Spontaneous
  Country: US (occurrence: US)
  Receive Date: 20190208
  Receipt Date: 20190208
  Transmission Date: 20190417
  Serious: Yes (Hospitalization)
  Sender: FDA-Public Use
  Company Number: None

PATIENT
  Sex: Male

DRUGS (10)
  1. ALLOPURINOL, DULOXETINE, [Concomitant]
  2. ENOXAPARIN, METOPROL, PREDNISONE, [Concomitant]
  3. PROCHLOAPER, OLANZAPINE [Concomitant]
  4. VITAMIN B-1, LOSARTAN [Concomitant]
  5. LENIMA, XARELTO, WARFARIN, BACLOFEN [Concomitant]
  6. DIVALPROEX, FENTANYL, MIRTAZAPINE, [Concomitant]
  7. ASPIRIN, ATORVASTATIN, TAB-A-VITE, [Concomitant]
  8. NIFEDIPINE, VANCOMYCIN, [Concomitant]
  9. AFINITOR [Suspect]
     Active Substance: EVEROLIMUS
     Indication: RENAL CANCER
     Route: 048
     Dates: start: 20181102
  10. GABAPENTIN, PANTOPRAZOLE, [Concomitant]

REACTIONS (4)
  - Sepsis [None]
  - Tongue biting [None]
  - Urinary tract infection [None]
  - Product dose omission [None]
